FAERS Safety Report 4277715-1 (Version None)
Quarter: 2004Q1

REPORT INFORMATION
  Report Type: 
  Country: None (occurrence: None)
  Receive Date: 20040123
  Receipt Date: 20030130
  Transmission Date: 20041129
  Serious: Yes (Other)
  Sender: FDA-Public Use
  Company Number: PHEH2003US01151

PATIENT
  Age: 58 Year
  Sex: Female

DRUGS (12)
  1. CYTOXAN [Concomitant]
     Dosage: 3 CYCLES BETWEEN MAR/JUN2002
  2. PREDNISONE [Concomitant]
  3. VINCRISTINE + ADRIAMYCIN + DEXAMETHASONE [Concomitant]
     Dates: start: 20020618, end: 20020915
  4. OXYCODONE HCL [Concomitant]
  5. ENALAPRIL MALEATE [Concomitant]
  6. PAXIL [Concomitant]
  7. THALIDOMIDE [Concomitant]
  8. VITAMIN B6 [Concomitant]
  9. PROCRIT [Concomitant]
  10. PROTONIX [Concomitant]
  11. AREDIA [Suspect]
     Indication: METASTASES TO BONE
     Dosage: 90 MG IN 100CC OVER 2HR, Q3-4WKS
     Dates: start: 20020322, end: 20020426
  12. ZOMETA [Suspect]
     Indication: METASTASES TO BONE
     Dosage: 4 MG OVER 15 MIN, QMO
     Route: 042
     Dates: start: 20020517

REACTIONS (10)
  - BONE DEBRIDEMENT [None]
  - INFECTION [None]
  - NEOPLASM PROGRESSION [None]
  - OSTECTOMY [None]
  - OSTEOMYELITIS [None]
  - OSTEONECROSIS [None]
  - POSTOPERATIVE INFECTION [None]
  - SEQUESTRECTOMY [None]
  - SURGERY [None]
  - TOOTH EXTRACTION [None]
